FAERS Safety Report 23643701 (Version 1)
Quarter: 2024Q1

REPORT INFORMATION
  Report Type: Spontaneous
  Country: US (occurrence: US)
  Receive Date: 20240318
  Receipt Date: 20240318
  Transmission Date: 20240410
  Serious: Yes (Life-Threatening, Other)
  Sender: FDA-Public Use
  Company Number: US-SANDOZ-SDZ2024US028828

PATIENT
  Age: 66 Year
  Sex: Male

DRUGS (1)
  1. SUCCINYLCHOLINE CHLORIDE [Suspect]
     Active Substance: SUCCINYLCHOLINE CHLORIDE
     Indication: Product used for unknown indication
     Dosage: 70 MG
     Route: 065

REACTIONS (2)
  - Cardiac arrest [Unknown]
  - Pulseless electrical activity [Unknown]
